FAERS Safety Report 9745850 (Version 1)
Quarter: 2013Q4

REPORT INFORMATION
  Report Type: Spontaneous
  Country: JP (occurrence: JP)
  Receive Date: 20131211
  Receipt Date: 20131211
  Transmission Date: 20140711
  Serious: Yes (Other)
  Sender: FDA-Public Use
  Company Number: JP-OTSUKA-JP-2013-15724

PATIENT
  Age: 49 Year
  Sex: Male

DRUGS (5)
  1. PLETAAL [Suspect]
     Dosage: 100 MG MILLIGRAM(S), DAILY DOSE
     Route: 048
  2. LOXOPROFEN [Suspect]
     Dosage: 60 MG MILLIGRAM(S), DAILY DOSE
     Route: 048
  3. OLMESARTAN MEDOXOMIL [Concomitant]
     Dosage: 10 MG MILLIGRAM(S), DAILY DOSE
     Route: 048
  4. LANSOPRAZOLE [Concomitant]
     Dosage: 15 MG MILLIGRAM(S), DAILY DOSE
     Route: 048
  5. BROTIZOLAM [Concomitant]
     Dosage: 0.25 MG MILLIGRAM(S), DAILY DOSE
     Route: 048

REACTIONS (2)
  - Deep vein thrombosis [Recovering/Resolving]
  - Pulmonary thrombosis [Recovered/Resolved]
